FAERS Safety Report 5241527-2 (Version None)
Quarter: 2007Q1

REPORT INFORMATION
  Report Type: 
  Country: None (occurrence: None)
  Receive Date: 20070220
  Receipt Date: 20070214
  Transmission Date: 20070707
  Serious: Yes (Hospitalization)
  Sender: FDA-Public Use
  Company Number: FR-GLAXOSMITHKLINE-B0458394A

PATIENT
  Age: 42 Year
  Sex: Male

DRUGS (13)
  1. EPIVIR [Suspect]
     Indication: HIV INFECTION
     Dosage: 150MG PER DAY
     Route: 048
     Dates: start: 20030915, end: 20061219
  2. COMBIVIR [Suspect]
     Indication: HIV INFECTION
     Route: 065
     Dates: start: 20030501, end: 20030915
  3. NORVIR [Suspect]
     Indication: HIV INFECTION
     Dosage: 2UNIT PER DAY
     Route: 048
     Dates: start: 20030915, end: 20061219
  4. VIDEX [Suspect]
     Indication: HIV INFECTION
     Dosage: 400MG PER DAY
     Route: 048
     Dates: start: 20060131, end: 20061219
  5. FUZEON [Suspect]
     Indication: HIV INFECTION
     Dosage: 1.8G PER DAY
     Route: 048
     Dates: start: 20030915, end: 20061219
  6. AZADOSE [Suspect]
     Dosage: 1.2G WEEKLY
     Route: 048
     Dates: end: 20061219
  7. DARUNAVIR [Suspect]
     Indication: HIV INFECTION
     Dosage: 4UNIT PER DAY
     Route: 048
     Dates: start: 20060131, end: 20061219
  8. VALACYCLOVIR HCL [Concomitant]
     Route: 065
     Dates: start: 20060901
  9. LASIX [Concomitant]
     Route: 065
     Dates: start: 20061128
  10. CORTANCYL [Concomitant]
     Dosage: 5MG UNKNOWN
     Route: 065
     Dates: start: 20060301
  11. LYRICA [Concomitant]
     Route: 065
     Dates: start: 20061204, end: 20061220
  12. TOPALGIC ( FRANCE ) [Concomitant]
     Route: 065
  13. RIVOTRIL [Concomitant]
     Dosage: 6DROP PER DAY
     Route: 065

REACTIONS (8)
  - CHOLESTASIS [None]
  - CYTOLYTIC HEPATITIS [None]
  - DYSPNOEA [None]
  - HEPATITIS [None]
  - LACTIC ACIDOSIS [None]
  - LIPASE INCREASED [None]
  - OCULAR ICTERUS [None]
  - PANCREATITIS [None]
